FAERS Safety Report 7673527-7 (Version None)
Quarter: 2011Q3

REPORT INFORMATION
  Report Type: 
  Country: None (occurrence: None)
  Receive Date: 20110810
  Receipt Date: 20110729
  Transmission Date: 20111222
  Serious: Yes (Other)
  Sender: FDA-Public Use
  Company Number: BR-US-EMD SERONO, INC.-7074626

PATIENT
  Sex: Female

DRUGS (6)
  1. OMEPRAZOLE [Concomitant]
  2. FOLIC ACID [Concomitant]
  3. REBIF [Suspect]
     Indication: RELAPSING-REMITTING MULTIPLE SCLEROSIS
     Dates: start: 20080407
  4. POLIVITAMINS [Concomitant]
  5. GABALLON [Concomitant]
  6. GLUTAMIN [Concomitant]

REACTIONS (11)
  - SPEECH DISORDER [None]
  - BALANCE DISORDER [None]
  - ALOPECIA [None]
  - LIGAMENT SPRAIN [None]
  - WEIGHT DECREASED [None]
  - BREAST CANCER [None]
  - FALL [None]
  - DYSPHAGIA [None]
  - NAUSEA [None]
  - GAIT DISTURBANCE [None]
  - FATIGUE [None]
